FAERS Safety Report 16874325 (Version 2)
Quarter: 2019Q4

REPORT INFORMATION
  Report Type: Spontaneous
  Country: JP (occurrence: JP)
  Receive Date: 20191001
  Receipt Date: 20191108
  Transmission Date: 20200122
  Serious: Yes (Other)
  Sender: FDA-Public Use
  Company Number: JP-BAUSCH-BL-2019-026319

PATIENT
  Age: 66 Year
  Sex: Male

DRUGS (11)
  1. AFLIBERCEPT [Concomitant]
     Active Substance: AFLIBERCEPT
     Dates: start: 20190402, end: 2019
  2. LOMEFLOXACIN HYDROCHLORIDE [Concomitant]
     Active Substance: LOMEFLOXACIN HYDROCHLORIDE
     Indication: PRODUCT USED FOR UNKNOWN INDICATION
  3. VISUDYNE [Suspect]
     Active Substance: VERTEPORFIN
     Indication: AGE-RELATED MACULAR DEGENERATION
     Route: 042
     Dates: start: 20180221
  4. VISUDYNE [Suspect]
     Active Substance: VERTEPORFIN
     Route: 042
     Dates: start: 20190417
  5. VISUDYNE [Suspect]
     Active Substance: VERTEPORFIN
     Route: 042
     Dates: start: 20190821, end: 20190821
  6. LEVOFLOXACIN HEMIHYDRATE [Concomitant]
     Active Substance: LEVOFLOXACIN
     Indication: PRODUCT USED FOR UNKNOWN INDICATION
  7. AFLIBERCEPT [Concomitant]
     Active Substance: AFLIBERCEPT
     Indication: PRODUCT USED FOR UNKNOWN INDICATION
     Dates: start: 20150721
  8. AFLIBERCEPT [Concomitant]
     Active Substance: AFLIBERCEPT
     Dates: start: 20180109
  9. AFLIBERCEPT [Concomitant]
     Active Substance: AFLIBERCEPT
     Dates: start: 20190828
  10. VISUDYNE [Suspect]
     Active Substance: VERTEPORFIN
     Route: 042
     Dates: start: 20180808
  11. TOSUFLOXACINE [Concomitant]
     Indication: PRODUCT USED FOR UNKNOWN INDICATION

REACTIONS (6)
  - Erythema [Recovered/Resolved]
  - Blister [Recovering/Resolving]
  - Pruritus [Recovering/Resolving]
  - Erythema [Recovered/Resolved]
  - Glaucoma [Unknown]
  - Blood creatinine increased [Not Recovered/Not Resolved]

NARRATIVE: CASE EVENT DATE: 2019
